FAERS Safety Report 21888330 (Version 4)
Quarter: 2024Q1

REPORT INFORMATION
  Report Type: Report from Study
  Country: US (occurrence: US)
  Receive Date: 20230120
  Receipt Date: 20240106
  Transmission Date: 20240410
  Serious: Yes (Life-Threatening, Other)
  Sender: FDA-Public Use
  Company Number: US-ABBVIE-4242877

PATIENT
  Sex: Female
  Weight: 90.718 kg

DRUGS (11)
  1. SKYRIZI [Suspect]
     Active Substance: RISANKIZUMAB-RZAA
     Indication: Psoriasis
     Dosage: FORM STRENGTH: 150 MG
     Route: 058
  2. SKYRIZI [Suspect]
     Active Substance: RISANKIZUMAB-RZAA
     Dosage: FORM STRENGTH: 75 MG
     Route: 058
  3. SYNTHROID [Concomitant]
     Active Substance: LEVOTHYROXINE SODIUM
     Indication: Product used for unknown indication
  4. OPTIVAR [Concomitant]
     Active Substance: AZELASTINE HYDROCHLORIDE
     Indication: Product used for unknown indication
     Dosage: FORM STRENGTH: 0.05 PERCENT
  5. VITAMIN E [Concomitant]
     Active Substance: .ALPHA.-TOCOPHEROL
     Indication: Product used for unknown indication
  6. CRESTOR [Concomitant]
     Active Substance: ROSUVASTATIN CALCIUM
     Indication: Product used for unknown indication
     Dosage: FORM STRENGTH: 20 MG
  7. XARELTO [Concomitant]
     Active Substance: RIVAROXABAN
     Indication: Product used for unknown indication
     Dosage: FORM STRENGTH: 20 MG
  8. FISH OIL [Concomitant]
     Active Substance: FISH OIL
     Indication: Product used for unknown indication
  9. CALCIUM CITRATE\VITAMIN D [Concomitant]
     Active Substance: CALCIUM CITRATE\VITAMIN D
     Indication: Product used for unknown indication
     Dosage: TAKE BY MOUTH TWICE DAILY.?315- 200 MG-UNIT TAB
  10. ATARAX [Concomitant]
     Active Substance: HYDROXYZINE HYDROCHLORIDE
     Indication: Product used for unknown indication
     Dosage: 0.5-1 TABLETS?FORM STRENGTH: 25 MG
  11. FLONASE [Concomitant]
     Active Substance: FLUTICASONE PROPIONATE
     Indication: Product used for unknown indication
     Dosage: INHALE 2 SPRAYS?50 MCG/ACT SUSPENSION

REACTIONS (6)
  - Pulmonary embolism [Recovered/Resolved]
  - Arthritis [Unknown]
  - Meniscus injury [Not Recovered/Not Resolved]
  - Erythema [Unknown]
  - Arthralgia [Not Recovered/Not Resolved]
  - Pulmonary thrombosis [Unknown]

NARRATIVE: CASE EVENT DATE: 20230101
